FAERS Safety Report 16263277 (Version 2)
Quarter: 2019Q2

REPORT INFORMATION
  Report Type: Spontaneous
  Country: US (occurrence: US)
  Receive Date: 20190502
  Receipt Date: 20190507
  Transmission Date: 20190711
  Serious: Yes (Life-Threatening, Other)
  Sender: FDA-Public Use
  Company Number: US-SA-2019SA120476

PATIENT
  Age: 17 Year
  Sex: Male

DRUGS (4)
  1. RITUXIMAB. [Suspect]
     Active Substance: RITUXIMAB
     Indication: IMMUNOSUPPRESSANT DRUG THERAPY
  2. MILRINONE [Concomitant]
     Active Substance: MILRINONE
  3. ANTI-THYMOCYTE GLOBULIN (RABBIT) NOS [Suspect]
     Active Substance: LAPINE T-LYMPHOCYTE IMMUNE GLOBULIN
     Indication: IMMUNOSUPPRESSANT DRUG THERAPY
  4. METHYLPREDNISOLONE. [Suspect]
     Active Substance: METHYLPREDNISOLONE
     Indication: IMMUNOSUPPRESSANT DRUG THERAPY

REACTIONS (11)
  - Hepatic failure [Unknown]
  - B-lymphocyte count increased [Unknown]
  - Condition aggravated [Unknown]
  - Acute respiratory distress syndrome [Unknown]
  - Transplant dysfunction [Unknown]
  - Epstein-Barr viraemia [Unknown]
  - Post transplant lymphoproliferative disorder [Unknown]
  - Pneumonia aspiration [Unknown]
  - Acute kidney injury [Unknown]
  - Respiratory failure [Unknown]
  - Pyrexia [Unknown]
